FAERS Safety Report 20954215 (Version 2)
Quarter: 2022Q3

REPORT INFORMATION
  Report Type: Spontaneous
  Country: US (occurrence: US)
  Receive Date: 20220614
  Receipt Date: 20220724
  Transmission Date: 20221027
  Serious: Yes (Hospitalization)
  Sender: FDA-Public Use
  Company Number: US-BIOGEN-2022BI01130876

PATIENT
  Age: 58 Year
  Sex: Female

DRUGS (1)
  1. TYSABRI [Suspect]
     Active Substance: NATALIZUMAB
     Indication: Multiple sclerosis
     Route: 050
     Dates: start: 20090709

REACTIONS (4)
  - Fall [Recovered/Resolved]
  - Cystitis [Unknown]
  - Multiple sclerosis relapse [Unknown]
  - Pneumonia [Unknown]

NARRATIVE: CASE EVENT DATE: 20220525
